FAERS Safety Report 6758647-3 (Version None)
Quarter: 2010Q2

REPORT INFORMATION
  Report Type: 
  Country: None (occurrence: None)
  Receive Date: 20100603
  Receipt Date: 20100517
  Transmission Date: 20101027
  Serious: Yes (Disabling, Other)
  Sender: FDA-Public Use
  Company Number: 20100219

PATIENT
  Age: 59 Year
  Sex: Female

DRUGS (2)
  1. DEHYDRATED ALCOHOL INJECTION, USP (8571-10) 99.50% [Suspect]
     Indication: EYE PAIN
     Dosage: 2 ML RETROBULBAR
     Route: 056
  2. CHLORPROMAZINE [Suspect]
     Indication: EYE PAIN
     Dosage: 1 ML OF 25 MG

REACTIONS (3)
  - DISORDER OF ORBIT [None]
  - FIBROSIS [None]
  - PAROPHTHALMIA [None]
